FAERS Safety Report 6945402-4 (Version None)
Quarter: 2010Q3

REPORT INFORMATION
  Report Type: 
  Country: None (occurrence: None)
  Receive Date: 20100827
  Receipt Date: 20100817
  Transmission Date: 20110219
  Serious: Yes (Other)
  Sender: FDA-Public Use
  Company Number: JP-ROCHE-703412

PATIENT
  Sex: Female
  Weight: 37 kg

DRUGS (14)
  1. AVASTIN [Suspect]
     Indication: LARGE INTESTINE CARCINOMA
     Dosage: .
     Route: 041
     Dates: start: 20091204, end: 20100409
  2. XELODA [Suspect]
     Indication: LARGE INTESTINE CARCINOMA
     Dosage: 2 WEEKS ADMINISTRATION FOLLOWED BY 1 WEEK REST.
     Route: 048
     Dates: start: 20091112, end: 20091209
  3. XELODA [Suspect]
     Route: 048
     Dates: start: 20100105, end: 20100209
  4. XELODA [Suspect]
     Route: 048
     Dates: start: 20100219, end: 20100423
  5. ELPLAT [Suspect]
     Indication: COLON CANCER METASTATIC
     Route: 041
     Dates: start: 20091112, end: 20091204
  6. ELPLAT [Suspect]
     Route: 041
     Dates: start: 20100105, end: 20100126
  7. ELPLAT [Suspect]
     Route: 041
     Dates: start: 20100219, end: 20100219
  8. RABEPRAZOLE SODIUM [Concomitant]
     Route: 048
     Dates: start: 20091030
  9. MAGLAX [Concomitant]
     Dosage: DOSE FORM: PERORAL AGENT. NOTE: DOSAGE IS UNCERTAIN.
     Route: 048
  10. VITAMEDIN [Concomitant]
     Route: 048
     Dates: start: 20091112, end: 20100423
  11. PURSENNID [Concomitant]
     Route: 048
     Dates: start: 20091109
  12. RAMELTEON [Concomitant]
     Dates: start: 20091112
  13. DEXART [Concomitant]
     Dosage: FORM:INJECTION
     Route: 041
     Dates: start: 20091112
  14. FOIPAN [Concomitant]
     Route: 048
     Dates: start: 20091208

REACTIONS (4)
  - KERATITIS [None]
  - MALAISE [None]
  - NAUSEA [None]
  - PANCREATIC ENZYMES INCREASED [None]
